FAERS Safety Report 24214296 (Version 3)
Quarter: 2025Q3

REPORT INFORMATION
  Report Type: Spontaneous
  Country: EU (occurrence: EU)
  Receive Date: 20240815
  Receipt Date: 20250809
  Transmission Date: 20251021
  Serious: Yes (Hospitalization, Other)
  Sender: ALEXION PHARMACEUTICALS
  Company Number: 2024A186342

PATIENT
  Age: 54 Year
  Sex: Female

DRUGS (14)
  1. QUETIAPINE FUMARATE [Suspect]
     Active Substance: QUETIAPINE FUMARATE
     Indication: Schizophrenia
     Dosage: IN THE EVENING
     Dates: start: 201801, end: 20240704
  2. QUETIAPINE FUMARATE [Suspect]
     Active Substance: QUETIAPINE FUMARATE
  3. QUETIAPINE FUMARATE [Suspect]
     Active Substance: QUETIAPINE FUMARATE
     Dosage: 700 MILLIGRAM, QD
     Dates: start: 20240705, end: 20240709
  4. CLOZAPINE [Suspect]
     Active Substance: CLOZAPINE
     Indication: Schizophrenia
     Dosage: 300 MILLIGRAM, QD
     Dates: start: 20240521, end: 20240720
  5. VALPROATE SODIUM [Suspect]
     Active Substance: VALPROATE SODIUM
     Indication: Affective disorder
  6. VALPROATE SODIUM [Suspect]
     Active Substance: VALPROATE SODIUM
  7. VALPROATE SODIUM [Suspect]
     Active Substance: VALPROATE SODIUM
  8. SULFIRAM [Suspect]
     Active Substance: SULFIRAM
     Dosage: BETWEEN 12/02/2024 AND 13/05/2024 (DATE UNKNOWN)
  9. OXAZEPAM [Suspect]
     Active Substance: OXAZEPAM
  10. OXAZEPAM [Suspect]
     Active Substance: OXAZEPAM
  11. TRIMEPRAZINE [Suspect]
     Active Substance: TRIMEPRAZINE
     Dosage: 10 MILLIGRAM, QD
  12. TRIMEPRAZINE [Suspect]
     Active Substance: TRIMEPRAZINE
     Dosage: 25 MILLIGRAM, QD
  13. PIPOTIAZINE [Suspect]
     Active Substance: PIPOTIAZINE
     Dosage: 10 MILLIGRAM, QD
  14. PIPOTIAZINE [Suspect]
     Active Substance: PIPOTIAZINE
     Dosage: 20 MILLIGRAM, QD
     Dates: start: 202407

REACTIONS (4)
  - Hepatitis acute [Recovered/Resolved]
  - COVID-19 [Unknown]
  - Hypotonia [Recovered/Resolved]
  - Fall [Recovered/Resolved]

NARRATIVE: CASE EVENT DATE: 20240607
